FAERS Safety Report 6771598-3 (Version None)
Quarter: 2010Q2

REPORT INFORMATION
  Report Type: 
  Country: None (occurrence: None)
  Receive Date: 20100616
  Receipt Date: 20100603
  Transmission Date: 20101027
  Serious: Yes (Hospitalization)
  Sender: FDA-Public Use
  Company Number: PHHY2010MX36890

PATIENT
  Age: 58 Year
  Sex: Female

DRUGS (1)
  1. ZELMAC [Suspect]
     Indication: IRRITABLE BOWEL SYNDROME
     Dosage: 3 TABLETS PER DAY
     Route: 048
     Dates: start: 20070901

REACTIONS (2)
  - GALLBLADDER DISORDER [None]
  - GALLBLADDER OPERATION [None]
